FAERS Safety Report 25579009 (Version 2)
Quarter: 2025Q3

REPORT INFORMATION
  Report Type: Spontaneous
  Country: JP (occurrence: JP)
  Receive Date: 20250718
  Receipt Date: 20250805
  Transmission Date: 20251020
  Serious: No
  Sender: PFIZER
  Company Number: JP-PFIZER INC-202500145696

PATIENT
  Sex: Male

DRUGS (1)
  1. GENOTROPIN [Suspect]
     Active Substance: SOMATROPIN
     Dosage: 1.8 MG, DAILY
     Route: 058

REACTIONS (1)
  - Device leakage [Unknown]
